FAERS Safety Report 6625794-6 (Version None)
Quarter: 2010Q1

REPORT INFORMATION
  Report Type: 
  Country: None (occurrence: None)
  Receive Date: 20100310
  Receipt Date: 20100305
  Transmission Date: 20100710
  Serious: Yes (Disabling)
  Sender: FDA-Public Use
  Company Number: GB-MERCK-1003GBR00035

PATIENT
  Age: 50 Year
  Sex: Female

DRUGS (4)
  1. FOSAMAX [Suspect]
     Route: 048
     Dates: start: 20070605, end: 20080824
  2. PAROXETINE [Concomitant]
     Route: 048
     Dates: start: 20030910
  3. PROCYCLIDINE HYDROCHLORIDE [Concomitant]
     Route: 048
     Dates: start: 20020214
  4. TEMAZEPAM [Concomitant]
     Route: 048
     Dates: start: 20080111

REACTIONS (2)
  - ABSCESS [None]
  - OSTEONECROSIS [None]
